FAERS Safety Report 10439840 (Version 2)
Quarter: 2014Q3

REPORT INFORMATION
  Report Type: Spontaneous
  Country: US (occurrence: US)
  Receive Date: 20140908
  Receipt Date: 20140908
  Transmission Date: 20150326
  Serious: No
  Sender: FDA-Public Use
  Company Number: US-BRISTOL-MYERS SQUIBB COMPANY-20037834

PATIENT
  Age: 21 Year
  Sex: Female

DRUGS (1)
  1. ABILIFY [Suspect]
     Active Substance: ARIPIPRAZOLE
     Dosage: INTIAL:FEB2013 AT 2 MG?UN2013,10MG DOSE REDUCED TO 5MG?FEB13-DEC13
     Dates: start: 201306

REACTIONS (6)
  - Somnolence [Unknown]
  - Staring [Recovering/Resolving]
  - Muscle tightness [Recovering/Resolving]
  - Masked facies [Unknown]
  - Weight increased [Recovering/Resolving]
  - Musculoskeletal stiffness [Unknown]

NARRATIVE: CASE EVENT DATE: 2013
